FAERS Safety Report 8618412 (Version 2)
Quarter: 2013Q1

REPORT INFORMATION
  Report Type: Report from Study
  Country: JP (occurrence: JP)
  Receive Date: 20120617
  Receipt Date: 20130211
  Transmission Date: 20140127
  Serious: No
  Sender: FDA-Public Use
  Company Number: JP-VERTEX PHARMACEUTICALS INC.-AE-2012-008620

PATIENT
  Age: 53 Year
  Sex: Male

DRUGS (9)
  1. VX-950 (TELAPREVIR) [Suspect]
     Indication: CHRONIC HEPATITIS C
     Dosage: 2250 MG, QD
     Route: 048
     Dates: start: 20120217, end: 20120220
  2. VX-950 (TELAPREVIR) [Suspect]
     Dosage: 1500 MG, QD
     Route: 048
     Dates: start: 20120221, end: 20120510
  3. PEGINTERFERON ALFA-2B [Suspect]
     Indication: CHRONIC HEPATITIS C
     Dosage: 1.5 ?G/KG, QW
     Route: 058
     Dates: start: 20120217, end: 20120727
  4. RIBAVIRIN [Concomitant]
     Dosage: 800 MG, QD
     Route: 048
     Dates: start: 20120217, end: 20120802
  5. EXFORGE [Concomitant]
     Dosage: 1 DF, UNK
     Route: 048
     Dates: end: 20120302
  6. LIMAPROST [Concomitant]
     Route: 048
     Dates: end: 20120302
  7. ESPO SUBCUTANEOUS INJECTION 12000 [Concomitant]
     Dosage: UNK, PRN
     Route: 058
     Dates: start: 20120302
  8. ESPO SUBCUTANEOUS INJECTION 12000 [Concomitant]
     Dosage: UNK, PRN
     Route: 058
     Dates: start: 20120406, end: 20120406
  9. ESPO SUBCUTANEOUS INJECTION 24000 [Concomitant]
     Dosage: UNK, PRN
     Route: 058
     Dates: start: 20120309

REACTIONS (1)
  - Renal impairment [Recovered/Resolved]
